FAERS Safety Report 5627384-0 (Version None)
Quarter: 2008Q1

REPORT INFORMATION
  Report Type: 
  Country: None (occurrence: None)
  Receive Date: 20080215
  Receipt Date: 20080208
  Transmission Date: 20080703
  Serious: Yes (Hospitalization, Other)
  Sender: FDA-Public Use
  Company Number: NL-JNJFOC-20070905258

PATIENT
  Sex: Male
  Weight: 92 kg

DRUGS (10)
  1. INFLIXIMAB [Suspect]
     Route: 042
  2. INFLIXIMAB [Suspect]
     Indication: PSORIASIS
     Route: 042
  3. CALCIUM CARBONATE [Concomitant]
  4. CLOPIDAGREL [Concomitant]
  5. ENOXAPARIN SODIUM [Concomitant]
  6. NITROGLYCERIN [Concomitant]
  7. ATORVASTATIN CALCIUM [Concomitant]
  8. METOPROLOL TARTRATE [Concomitant]
  9. SALMETEROL [Concomitant]
  10. TIROFIBAN [Concomitant]

REACTIONS (3)
  - INTERSTITIAL LUNG DISEASE [None]
  - PERICARDITIS [None]
  - PNEUMONIA [None]
